FAERS Safety Report 4392224-7 (Version None)
Quarter: 2004Q3

REPORT INFORMATION
  Report Type: 
  Country: None (occurrence: None)
  Receive Date: 20040702
  Receipt Date: 20040629
  Transmission Date: 20050211
  Serious: Yes (Other)
  Sender: FDA-Public Use
  Company Number: 138571USA

PATIENT
  Age: 61 Year
  Sex: Female
  Weight: 100 kg

DRUGS (1)
  1. PROPOFOL [Suspect]
     Indication: SEDATION
     Dates: start: 20040316, end: 20040318

REACTIONS (3)
  - EXTRAVASATION [None]
  - INFUSION SITE REACTION [None]
  - WOUND [None]
